FAERS Safety Report 21331347 (Version 1)
Quarter: 2022Q3

REPORT INFORMATION
  Report Type: Other
  Country: US (occurrence: None)
  Receive Date: 20220914
  Receipt Date: 20220914
  Transmission Date: 20221027
  Serious: Yes (Hospitalization)
  Sender: FDA-Public Use
  Company Number: US-ROCHE-3176057

PATIENT
  Age: 34 Year
  Sex: Female
  Weight: 59.020 kg

DRUGS (7)
  1. OCREVUS [Suspect]
     Active Substance: OCRELIZUMAB
     Indication: Relapsing-remitting multiple sclerosis
     Dosage: YES
     Route: 042
     Dates: start: 202009
  2. BACLOFEN [Concomitant]
     Active Substance: BACLOFEN
  3. AMPYRA [Concomitant]
     Active Substance: DALFAMPRIDINE
  4. LEXAPRO [Concomitant]
     Active Substance: ESCITALOPRAM OXALATE
  5. PROGESTERONE [Concomitant]
     Active Substance: PROGESTERONE
  6. GABAPENTIN [Concomitant]
     Active Substance: GABAPENTIN
  7. XANAX [Concomitant]
     Active Substance: ALPRAZOLAM

REACTIONS (13)
  - Herpes zoster [Recovered/Resolved]
  - Urinary tract infection [Recovered/Resolved]
  - Vomiting [Recovered/Resolved]
  - Delusion [Recovered/Resolved]
  - Sepsis [Recovered/Resolved]
  - Panic attack [Recovering/Resolving]
  - Anaemia [Not Recovered/Not Resolved]
  - Pelvic abscess [Recovering/Resolving]
  - COVID-19 [Recovered/Resolved]
  - Staphylococcal infection [Recovered/Resolved]
  - Muscle spasticity [Unknown]
  - Pyrexia [Recovered/Resolved]
  - Ophthalmic migraine [Recovered/Resolved]

NARRATIVE: CASE EVENT DATE: 20201001
